FAERS Safety Report 6260288-1 (Version None)
Quarter: 2009Q3

REPORT INFORMATION
  Report Type: 
  Country: None (occurrence: None)
  Receive Date: 20090708
  Receipt Date: 20090618
  Transmission Date: 20100115
  Serious: No
  Sender: FDA-Public Use
  Company Number: US-AVENTIS-200915414US

PATIENT
  Age: 74 Year
  Sex: Male

DRUGS (2)
  1. LANTUS [Suspect]
     Dosage: DOSE: 10 UNITS IN AM AND 5-8 UNITS IN PM
     Route: 058
     Dates: start: 20070308
  2. OPTICLIK (INSULIN INJECTION PEN) [Suspect]
     Dates: start: 20070308

REACTIONS (2)
  - FEELING ABNORMAL [None]
  - OVERDOSE [None]
